FAERS Safety Report 10540877 (Version 1)
Quarter: 2014Q4

REPORT INFORMATION
  Report Type: Spontaneous
  Country: US (occurrence: None)
  Receive Date: 20141010
  Receipt Date: 20141010
  Transmission Date: 20150529
  Serious: No
  Sender: FDA-Public Use
  Company Number: 163-POMAL-14062237

PATIENT
  Age: 75 Year
  Sex: Female
  Weight: 108.86 kg

DRUGS (14)
  1. LASIX (FUROSEMIDE) - (UNKNOWN) [Concomitant]
  2. TYLENOL (PARACETAMO.L) (UNKNOWN) [Concomitant]
  3. PRESERVISION [Concomitant]
  4. D2000 ULTRA STRENGTH (LEKOVIT CA) (UNKNOWN)? [Concomitant]
  5. DEXAMETHASONE (DEXAMETHASONE) (UNKWOWN) [Concomitant]
  6. LOPRESSOR (METOPROLOL TARTRATE) (UNKNOWN) [Concomitant]
  7. CIPROFLOXACIN (CIPROFLOXACIN) (UNKNOWN) (CIPROFLOXACIN) [Concomitant]
     Active Substance: CIPROFLOXACIN
  8. NEURONTIN (GABAPENTIN) (UNKNOWN) [Concomitant]
  9. VITAMIN D (ERGOCALCIFEROL) - (UNKNOWN) [Concomitant]
  10. CENTRUM SPECIALIST VISION (CENTRUM) (UNKNOWN) [Concomitant]
  11. POMALYST [Suspect]
     Active Substance: POMALIDOMIDE
     Indication: PLASMA CELL MYELOMA
     Dosage: 4 MG, 21 IN 21 D, PO?
     Route: 048
     Dates: start: 20140522, end: 2014
  12. COUMADIN [Concomitant]
     Active Substance: WARFARIN SODIUM
  13. VITAMIN B12 (CYANOCOBALAMIN) (UNKNOWN) [Concomitant]
  14. LANOXIN (DIGOXIN) (UNKNOWN) [Concomitant]

REACTIONS (2)
  - Platelet count decreased [None]
  - Body height decreased [None]

NARRATIVE: CASE EVENT DATE: 2014
